FAERS Safety Report 7882774-0 (Version None)
Quarter: 2011Q4

REPORT INFORMATION
  Report Type: 
  Country: None (occurrence: None)
  Receive Date: 20111101
  Receipt Date: 20110620
  Transmission Date: 20120403
  Serious: No
  Sender: FDA-Public Use
  Company Number: US-AMGEN-USASP2011031636

PATIENT
  Age: 58 Year
  Sex: Male

DRUGS (2)
  1. ENBREL [Suspect]
     Indication: PSORIATIC ARTHROPATHY
  2. ENBREL [Suspect]
     Indication: PSORIASIS
     Dosage: 50 MG, QWK
     Dates: start: 20110524

REACTIONS (6)
  - EYE INFLAMMATION [None]
  - EYELID OEDEMA [None]
  - HEADACHE [None]
  - PSORIASIS [None]
  - FOREIGN BODY SENSATION IN EYES [None]
  - EYE PAIN [None]
